FAERS Safety Report 20822682 (Version 2)
Quarter: 2022Q2

REPORT INFORMATION
  Report Type: Spontaneous
  Country: US (occurrence: US)
  Receive Date: 20220512
  Receipt Date: 20220518
  Transmission Date: 20220720
  Serious: No
  Sender: FDA-Public Use
  Company Number: US-PFIZER INC-202200548375

PATIENT
  Age: 50 Year
  Sex: Female
  Weight: 47.17 kg

DRUGS (3)
  1. EUCRISA [Suspect]
     Active Substance: CRISABOROLE
     Indication: Eczema
     Dosage: UNK, 2X/DAY (USED TWO TIMES A DAY FOR A LONG TIME)
  2. DEXORIDE [Concomitant]
     Dosage: UNK
  3. ZYRTEC [Concomitant]
     Active Substance: CETIRIZINE HYDROCHLORIDE
     Indication: Seasonal allergy
     Dosage: UNK (TAKES ONE FOR 24 HOURS )

REACTIONS (10)
  - Intentional product misuse [Unknown]
  - Expired product administered [Unknown]
  - Helicobacter infection [Not Recovered/Not Resolved]
  - Erythema [Not Recovered/Not Resolved]
  - Skin disorder [Not Recovered/Not Resolved]
  - Condition aggravated [Unknown]
  - Abdominal discomfort [Unknown]
  - Herpes zoster [Unknown]
  - Eczema [Unknown]
  - Burning sensation [Unknown]
